FAERS Safety Report 24813147 (Version 1)
Quarter: 2025Q1

REPORT INFORMATION
  Report Type: Spontaneous
  Country: SI (occurrence: SI)
  Receive Date: 20250107
  Receipt Date: 20250107
  Transmission Date: 20250409
  Serious: Yes (Other)
  Sender: ALKEM
  Company Number: SI-ALKEM LABORATORIES LIMITED-SI-ALKEM-2024-09979

PATIENT
  Age: 90 Year
  Sex: Male

DRUGS (2)
  1. RANOLAZINE [Suspect]
     Active Substance: RANOLAZINE
     Indication: Angina pectoris
     Dosage: 500 MILLIGRAM, BID
     Route: 065
  2. RANOLAZINE [Suspect]
     Active Substance: RANOLAZINE
     Dosage: 375 MILLIGRAM, BID (REINTRODUCED DOSE)
     Route: 065

REACTIONS (1)
  - Hallucination, visual [Recovered/Resolved]
